FAERS Safety Report 16844450 (Version 3)
Quarter: 2021Q3

REPORT INFORMATION
  Report Type: Spontaneous
  Country: US (occurrence: US)
  Receive Date: 20190924
  Receipt Date: 20210723
  Transmission Date: 20211014
  Serious: Yes (Other)
  Sender: FDA-Public Use
  Company Number: US-GILEAD-2019-0429665

PATIENT
  Age: 41 Year
  Sex: Female
  Weight: 84.81 kg

DRUGS (78)
  1. CEFDINIR. [Concomitant]
     Active Substance: CEFDINIR
  2. GABAPENTIN. [Concomitant]
     Active Substance: GABAPENTIN
  3. ENDACOF [Concomitant]
  4. LABETALOL [Concomitant]
     Active Substance: LABETALOL\LABETALOL HYDROCHLORIDE
  5. LISINOPRIL. [Concomitant]
     Active Substance: LISINOPRIL
  6. CLONIDINE. [Concomitant]
     Active Substance: CLONIDINE
  7. FOLBEE PLUS [Concomitant]
  8. CEFPODOXIME [Concomitant]
     Active Substance: CEFPODOXIME
  9. PAXIL [PIROXICAM] [Concomitant]
     Active Substance: PIROXICAM
  10. NORVIR [Concomitant]
     Active Substance: RITONAVIR
     Indication: HIV INFECTION
     Dosage: UNK
     Route: 048
     Dates: start: 20171104
  11. SODIUM BICARBONATE. [Concomitant]
     Active Substance: SODIUM BICARBONATE
  12. FLUCONAZOLE. [Concomitant]
     Active Substance: FLUCONAZOLE
  13. LEVOFLOXACIN. [Concomitant]
     Active Substance: LEVOFLOXACIN
  14. COZAAR [Concomitant]
     Active Substance: LOSARTAN POTASSIUM
  15. HYDROXYZINE HCL [Concomitant]
     Active Substance: HYDROXYZINE HYDROCHLORIDE
  16. BENZONATATE. [Concomitant]
     Active Substance: BENZONATATE
  17. METRONIDAZOLE. [Concomitant]
     Active Substance: METRONIDAZOLE
  18. CALCITRIOL. [Concomitant]
     Active Substance: CALCITRIOL
  19. MAG64 [Concomitant]
     Active Substance: CALCIUM CHLORIDE\MAGNESIUM CHLORIDE
  20. VIREAD [Suspect]
     Active Substance: TENOFOVIR DISOPROXIL FUMARATE
     Dosage: UNK
     Route: 048
     Dates: start: 2005, end: 20171104
  21. ROPINIROLE. [Concomitant]
     Active Substance: ROPINIROLE
  22. AMOXICILLIN. [Concomitant]
     Active Substance: AMOXICILLIN
  23. PHOSLO [Concomitant]
     Active Substance: CALCIUM ACETATE
  24. CEPHALEXIN [CEFALEXIN] [Concomitant]
     Active Substance: CEPHALEXIN
  25. CLINDAMYCIN. [Concomitant]
     Active Substance: CLINDAMYCIN
  26. VIRACEPT [Concomitant]
     Active Substance: NELFINAVIR MESYLATE
     Indication: HIV INFECTION
     Dosage: UNK
     Route: 048
     Dates: start: 201103
  27. ALBUTEROL SULFATE. [Concomitant]
     Active Substance: ALBUTEROL SULFATE
  28. AURYXIA [Concomitant]
     Active Substance: TETRAFERRIC TRICITRATE DECAHYDRATE
  29. AXERT [Concomitant]
     Active Substance: ALMOTRIPTAN MALATE
  30. VALACYCLOVIR [Concomitant]
     Active Substance: VALACYCLOVIR HYDROCHLORIDE
  31. VIDEX [Concomitant]
     Active Substance: DIDANOSINE
     Indication: HIV INFECTION
     Route: 048
  32. RETROVIR [Concomitant]
     Active Substance: ZIDOVUDINE
     Indication: HIV INFECTION
     Route: 048
  33. KIONEX [Concomitant]
     Active Substance: SODIUM POLYSTYRENE SULFONATE
  34. LEVAQUIN [Concomitant]
     Active Substance: LEVOFLOXACIN
  35. UROGESIC BLUE [Concomitant]
     Active Substance: HYOSCYAMINE SULFATE\METHENAMINE\METHYLENE BLUE\PHENYL SALICYLATE\SODIUM PHOSPHATE, MONOBASIC, MONOHYDRATE
  36. PROPOXYPHENE AND ACETAMINOPHEN [Concomitant]
     Active Substance: ACETAMINOPHEN\PROPOXYPHENE NAPSYLATE
  37. CEFUROXIME. [Concomitant]
     Active Substance: CEFUROXIME
  38. IMITREX [Concomitant]
     Active Substance: SUMATRIPTAN SUCCINATE
  39. AZITHROMYCIN ANHYDROUS. [Concomitant]
     Active Substance: AZITHROMYCIN ANHYDROUS
  40. PROMETHAZINE [Concomitant]
     Active Substance: PROMETHAZINE HYDROCHLORIDE
  41. METOCLOPRAMIDE. [Concomitant]
     Active Substance: METOCLOPRAMIDE
  42. CEPHADYN [Concomitant]
     Active Substance: ACETAMINOPHEN\BUTALBITAL
  43. DOXYCYCLINE. [Concomitant]
     Active Substance: DOXYCYCLINE
  44. VIREAD [Suspect]
     Active Substance: TENOFOVIR DISOPROXIL FUMARATE
     Indication: HIV INFECTION
     Dosage: UNK
     Route: 048
     Dates: start: 2007, end: 20171104
  45. EMTRIVA [Concomitant]
     Active Substance: EMTRICITABINE
     Indication: HIV INFECTION
     Dosage: UNK
     Route: 048
     Dates: start: 20170908, end: 20170908
  46. TIVICAY [Concomitant]
     Active Substance: DOLUTEGRAVIR SODIUM
     Indication: HIV INFECTION
     Dosage: UNK
     Route: 048
     Dates: start: 20171228, end: 20191007
  47. COMBIVIR [Concomitant]
     Active Substance: LAMIVUDINE\ZIDOVUDINE
  48. CHLORZOXAZONE. [Concomitant]
     Active Substance: CHLORZOXAZONE
  49. R?TANNA [CHLORPHENAMINE TANNATE;PHENYLEPHRINE TANNATE] [Concomitant]
  50. AMLODIPINE [Concomitant]
     Active Substance: AMLODIPINE BESYLATE
  51. CALCIUM ACETATE. [Concomitant]
     Active Substance: CALCIUM ACETATE
  52. PREDNISONE. [Concomitant]
     Active Substance: PREDNISONE
  53. DIVALPROEX [Concomitant]
     Active Substance: DIVALPROEX SODIUM
  54. PROCHLORPERAZINE. [Concomitant]
     Active Substance: PROCHLORPERAZINE
  55. METHYLPREDNISOLONE. [Concomitant]
     Active Substance: METHYLPREDNISOLONE
  56. CYCLOBENZAPRINE. [Concomitant]
     Active Substance: CYCLOBENZAPRINE
  57. FOSRENOL [Concomitant]
     Active Substance: LANTHANUM CARBONATE
  58. PHENAZOPYRIDINE. [Concomitant]
     Active Substance: PHENAZOPYRIDINE
  59. ONDANSETRON [Concomitant]
     Active Substance: ONDANSETRON
  60. VENTOLIN HFA [Concomitant]
     Active Substance: ALBUTEROL SULFATE
  61. VALGANCICLOVIR. [Concomitant]
     Active Substance: VALGANCICLOVIR
  62. TMP [Concomitant]
     Active Substance: TRIMETHOPRIM
  63. HYDROCODONE [Concomitant]
     Active Substance: HYDROCODONE
  64. ERY?TAB [Concomitant]
     Active Substance: ERYTHROMYCIN
  65. TRAZODONE [Concomitant]
     Active Substance: TRAZODONE HYDROCHLORIDE
  66. SORBITOL. [Concomitant]
     Active Substance: SORBITOL
  67. CARVEDILOL. [Concomitant]
     Active Substance: CARVEDILOL
  68. DESCOVY [Concomitant]
     Active Substance: EMTRICITABINE\TENOFOVIR ALAFENAMIDE FUMARATE
     Indication: HIV INFECTION
     Dosage: UNK
     Route: 048
     Dates: start: 20171007, end: 20191007
  69. REYATAZ [Concomitant]
     Active Substance: ATAZANAVIR SULFATE
     Indication: HIV INFECTION
     Dosage: UNK
     Route: 048
     Dates: start: 20090918, end: 20171104
  70. AMOXCLAV [AMOXICILLIN;CLAVULANIC ACID] [Concomitant]
     Active Substance: AMOXICILLIN\CLAVULANIC ACID
  71. FLUTICASONE. [Concomitant]
     Active Substance: FLUTICASONE
  72. HYDRALAZINE [Concomitant]
     Active Substance: HYDRALAZINE HYDROCHLORIDE
  73. NIFEDIPINE. [Concomitant]
     Active Substance: NIFEDIPINE
  74. SMP [Concomitant]
  75. PROMETHEGAN [Concomitant]
     Active Substance: PROMETHAZINE HYDROCHLORIDE
  76. HYDRO DP [Concomitant]
  77. CLONAZEPAM. [Concomitant]
     Active Substance: CLONAZEPAM
  78. CIPROFLOXACIN. [Concomitant]
     Active Substance: CIPROFLOXACIN

REACTIONS (17)
  - Renal failure [Not Recovered/Not Resolved]
  - Osteopenia [Not Recovered/Not Resolved]
  - Anxiety [Not Recovered/Not Resolved]
  - Economic problem [Not Recovered/Not Resolved]
  - End stage renal disease [Not Recovered/Not Resolved]
  - Osteoporosis [Not Recovered/Not Resolved]
  - Chronic kidney disease [Not Recovered/Not Resolved]
  - Emotional distress [Not Recovered/Not Resolved]
  - Nephrogenic anaemia [Not Recovered/Not Resolved]
  - Upper limb fracture [Not Recovered/Not Resolved]
  - Anhedonia [Not Recovered/Not Resolved]
  - Hyperparathyroidism [Not Recovered/Not Resolved]
  - Radius fracture [Not Recovered/Not Resolved]
  - Depression [Not Recovered/Not Resolved]
  - Fatigue [Not Recovered/Not Resolved]
  - Pain [Not Recovered/Not Resolved]
  - Loss of personal independence in daily activities [Not Recovered/Not Resolved]

NARRATIVE: CASE EVENT DATE: 2007
